FAERS Safety Report 8120892-2 (Version None)
Quarter: 2012Q1

REPORT INFORMATION
  Report Type: 
  Country: None (occurrence: None)
  Receive Date: 20120208
  Receipt Date: 20120203
  Transmission Date: 20120608
  Serious: Yes (Hospitalization)
  Sender: FDA-Public Use
  Company Number: US-TEVA-321095USA

PATIENT
  Sex: Male
  Weight: 72.186 kg

DRUGS (3)
  1. TREANDA [Suspect]
     Indication: CHRONIC LYMPHOCYTIC LEUKAEMIA
     Route: 042
     Dates: start: 20111017
  2. VYTORIN [Concomitant]
  3. TOPROL-XL [Concomitant]

REACTIONS (8)
  - WEIGHT DECREASED [None]
  - ENERGY INCREASED [None]
  - VOMITING [None]
  - NAUSEA [None]
  - BLOOD GLUCOSE INCREASED [None]
  - THROMBOSIS [None]
  - CHILLS [None]
  - FATIGUE [None]
